FAERS Safety Report 8277117-7 (Version None)
Quarter: 2012Q2

REPORT INFORMATION
  Report Type: 
  Country: None (occurrence: None)
  Receive Date: 20120412
  Receipt Date: 20120328
  Transmission Date: 20120825
  Serious: Yes (Other)
  Sender: FDA-Public Use
  Company Number: US-ROCHE-1054286

PATIENT
  Sex: Male

DRUGS (1)
  1. KLONOPIN [Suspect]
     Indication: PRODUCT USED FOR UNKNOWN INDICATION

REACTIONS (8)
  - MUSCULAR WEAKNESS [None]
  - WEIGHT DECREASED [None]
  - DEPRESSION [None]
  - MENTAL IMPAIRMENT [None]
  - FATIGUE [None]
  - ANXIETY [None]
  - THINKING ABNORMAL [None]
  - VISUAL IMPAIRMENT [None]
